FAERS Safety Report 4310434-1 (Version None)
Quarter: 2004Q1

REPORT INFORMATION
  Report Type: 
  Country: None (occurrence: None)
  Receive Date: 20040303
  Receipt Date: 20040222
  Transmission Date: 20041129
  Serious: Yes (Other)
  Sender: FDA-Public Use
  Company Number: PHBS2004BR02724

PATIENT
  Sex: Female
  Weight: 90 kg

DRUGS (1)
  1. CODATEN [Suspect]
     Indication: INTERVERTEBRAL DISC PROTRUSION
     Dosage: 1 TABLET, ONCE/SINGLE
     Route: 048
     Dates: start: 20040220, end: 20040220

REACTIONS (7)
  - ASTHENIA [None]
  - CHILLS [None]
  - DEAFNESS [None]
  - DIARRHOEA [None]
  - DIZZINESS [None]
  - NAUSEA [None]
  - VOMITING [None]
